FAERS Safety Report 6678848-2 (Version None)
Quarter: 2010Q2

REPORT INFORMATION
  Report Type: 
  Country: None (occurrence: None)
  Receive Date: 20100412
  Receipt Date: 20100412
  Transmission Date: 20101027
  Serious: No
  Sender: FDA-Public Use
  Company Number: None

PATIENT
  Age: 81 Year
  Sex: Male
  Weight: 72.1219 kg

DRUGS (1)
  1. SPIRIVA [Suspect]
     Indication: RESPIRATORY DISORDER
     Dosage: ONE DAILY INHAL
     Route: 055
     Dates: start: 20100219, end: 20100410

REACTIONS (1)
  - CAPSULE ISSUE [None]
